FAERS Safety Report 7459669-X (Version None)
Quarter: 2011Q2

REPORT INFORMATION
  Report Type: 
  Country: None (occurrence: None)
  Receive Date: 20110504
  Receipt Date: 20110504
  Transmission Date: 20111010
  Serious: Yes (Other)
  Sender: FDA-Public Use
  Company Number: None

PATIENT
  Age: 59 Year
  Sex: Female
  Weight: 113.3993 kg

DRUGS (2)
  1. PRAVASTATIN SODIUM [Suspect]
     Indication: LOW DENSITY LIPOPROTEIN INCREASED
     Dosage: 20 MG DAILY PO
     Route: 048
     Dates: start: 20100809, end: 20101211
  2. PRAVASTATIN SODIUM [Suspect]
     Indication: HIGH DENSITY LIPOPROTEIN DECREASED
     Dosage: 20 MG DAILY PO
     Route: 048
     Dates: start: 20100809, end: 20101211

REACTIONS (3)
  - MOUTH HAEMORRHAGE [None]
  - STOMATITIS [None]
  - CHEILITIS [None]
